FAERS Safety Report 7764741-0 (Version None)
Quarter: 2011Q3

REPORT INFORMATION
  Report Type: 
  Country: None (occurrence: None)
  Receive Date: 20110921
  Receipt Date: 20110921
  Transmission Date: 20111222
  Serious: No
  Sender: FDA-Public Use
  Company Number: None

PATIENT
  Age: 58 Year
  Sex: Female
  Weight: 78.925 kg

DRUGS (3)
  1. SIMVASTATIN [Concomitant]
     Dates: start: 20040101, end: 20110901
  2. AMLODIPINE BESYLATE [Suspect]
     Indication: BLOOD CHOLESTEROL INCREASED
     Dosage: 1
     Dates: start: 20040101, end: 20110901
  3. AMLODIPINE BESYLATE [Suspect]
     Indication: BLOOD CHOLESTEROL
     Dosage: 1
     Dates: start: 20040101, end: 20110901

REACTIONS (1)
  - HEPATIC LESION [None]
